FAERS Safety Report 7266264-4 (Version None)
Quarter: 2011Q1

REPORT INFORMATION
  Report Type: 
  Country: None (occurrence: None)
  Receive Date: 20110131
  Receipt Date: 20110125
  Transmission Date: 20110831
  Serious: Yes (Hospitalization)
  Sender: FDA-Public Use
  Company Number: BR-MEDIMMUNE-MEDI-0012345

PATIENT
  Sex: Male
  Weight: 6.3 kg

DRUGS (5)
  1. RANITIDINE HYDROCHLORIDE [Concomitant]
     Route: 048
  2. DOMPERIDONE [Concomitant]
     Route: 048
  3. ROTAVIRUS VACCINE [Suspect]
  4. PNEUMOCOCCAL VACCINE [Suspect]
  5. SYNAGIS [Suspect]
     Route: 030
     Dates: start: 20100706, end: 20100706

REACTIONS (3)
  - CYANOSIS [None]
  - HYPOPHAGIA [None]
  - HYPERSENSITIVITY [None]
